FAERS Safety Report 6237437-4 (Version None)
Quarter: 2009Q2

REPORT INFORMATION
  Report Type: 
  Country: None (occurrence: None)
  Receive Date: 20090619
  Receipt Date: 20090609
  Transmission Date: 20091009
  Serious: Yes (Hospitalization)
  Sender: FDA-Public Use
  Company Number: SE-AMGEN-US348168

PATIENT
  Sex: Male

DRUGS (3)
  1. ENBREL [Suspect]
     Indication: RHEUMATOID ARTHRITIS
     Route: 058
     Dates: start: 19990901, end: 20080507
  2. PRONAXEN [Concomitant]
     Route: 048
  3. PREDNISOLONE [Concomitant]
     Route: 048

REACTIONS (2)
  - INTRA-ABDOMINAL HAEMORRHAGE [None]
  - THROMBOCYTOPENIA [None]
